FAERS Safety Report 17054931 (Version 3)
Quarter: 2021Q2

REPORT INFORMATION
  Report Type: Spontaneous
  Country: US (occurrence: US)
  Receive Date: 20191120
  Receipt Date: 20210406
  Transmission Date: 20210716
  Serious: Yes (Other)
  Sender: FDA-Public Use
  Company Number: US-SA-2019SA315423

PATIENT
  Age: 74 Year
  Sex: Female

DRUGS (10)
  1. MULTI VITAMIN [ASCORBIC ACID;FOLIC ACID;NICOTINIC ACID;PYRIDOXINE HYDR [Concomitant]
  2. PRILOSEC [Concomitant]
     Active Substance: OMEPRAZOLE MAGNESIUM
  3. DUPIXENT [Suspect]
     Active Substance: DUPILUMAB
     Indication: DERMATITIS ATOPIC
     Dosage: 300 MG, QOW
  4. ATORVASTATIN CALCIUM. [Concomitant]
     Active Substance: ATORVASTATIN CALCIUM
  5. DUPIXENT [Suspect]
     Active Substance: DUPILUMAB
     Indication: ECZEMA
  6. ESTRADIOL. [Concomitant]
     Active Substance: ESTRADIOL
  7. STOOL SOFTENER (DOCUSATE) [Concomitant]
     Active Substance: DOCUSATE
  8. TRAMADOL. [Concomitant]
     Active Substance: TRAMADOL
  9. MAGNESIUM CITRATE. [Concomitant]
     Active Substance: MAGNESIUM CITRATE
  10. MONTELUKAST SODIUM. [Concomitant]
     Active Substance: MONTELUKAST SODIUM

REACTIONS (6)
  - Therapeutic response decreased [Unknown]
  - Paraesthesia [Unknown]
  - Pruritus [Unknown]
  - Macular degeneration [Unknown]
  - Sleep disorder [Unknown]
  - Glaucoma [Unknown]

NARRATIVE: CASE EVENT DATE: 202103
